FAERS Safety Report 12241183 (Version 1)
Quarter: 2016Q2

REPORT INFORMATION
  Report Type: Spontaneous
  Country: US (occurrence: None)
  Receive Date: 20160405
  Receipt Date: 20160405
  Transmission Date: 20160815
  Serious: No
  Sender: FDA-Public Use
  Company Number: None

PATIENT
  Sex: Male

DRUGS (8)
  1. DICLOFENAC [Concomitant]
     Active Substance: DICLOFENAC
  2. MULTIVITAMIN [Concomitant]
     Active Substance: VITAMINS
  3. ENBREL [Suspect]
     Active Substance: ETANERCEPT
     Indication: PSORIASIS
     Route: 058
     Dates: start: 201602
  4. OMEPRAZOLE. [Concomitant]
     Active Substance: OMEPRAZOLE
  5. METHOTREXATE HOSPIRA [Suspect]
     Active Substance: METHOTREXATE SODIUM
     Indication: PSORIASIS
     Dates: start: 201602
  6. PREDNISONE. [Concomitant]
     Active Substance: PREDNISONE
  7. LOVENOX [Concomitant]
     Active Substance: ENOXAPARIN SODIUM
  8. AMOXICILLIN. [Concomitant]
     Active Substance: AMOXICILLIN

REACTIONS (1)
  - Condition aggravated [None]
